FAERS Safety Report 8925376 (Version 3)
Quarter: 2013Q2

REPORT INFORMATION
  Report Type: Spontaneous
  Country: US (occurrence: US)
  Receive Date: 20121126
  Receipt Date: 20130618
  Transmission Date: 20140414
  Serious: Yes (Hospitalization, Other)
  Sender: FDA-Public Use
  Company Number: US-009507513-1203USA01353

PATIENT
  Sex: Female

DRUGS (5)
  1. FOSAMAX [Suspect]
     Indication: OSTEOPOROSIS
     Dosage: 10 MG, QD
     Route: 048
     Dates: start: 200010, end: 2007
  2. FOSAMAX [Suspect]
     Dosage: 70 MG, UNK
     Route: 048
     Dates: start: 200107, end: 200404
  3. ACTONEL [Concomitant]
     Indication: OSTEOPOROSIS
  4. INSULIN GLARGINE [Concomitant]
     Indication: TYPE 1 DIABETES MELLITUS
     Dosage: 14 IU, TID
  5. APIDRA [Concomitant]
     Indication: TYPE 1 DIABETES MELLITUS
     Dosage: 8 IU, TID

REACTIONS (25)
  - Femur fracture [Unknown]
  - Closed fracture manipulation [Unknown]
  - Fracture delayed union [Unknown]
  - Intramedullary rod insertion [Unknown]
  - Device failure [Unknown]
  - Fall [Unknown]
  - Humerus fracture [Unknown]
  - Intramedullary rod insertion [Unknown]
  - Diabetes mellitus inadequate control [Recovering/Resolving]
  - Atrial fibrillation [Recovered/Resolved]
  - Medical device removal [Unknown]
  - Device failure [Unknown]
  - Pelvic fracture [Unknown]
  - Low turnover osteopathy [Unknown]
  - Hypertension [Unknown]
  - Dental prosthesis user [Unknown]
  - Blood cholesterol increased [Unknown]
  - Acidosis [Unknown]
  - Pathogen resistance [Unknown]
  - Culture urine positive [Unknown]
  - Cardiac enzymes [Unknown]
  - Diverticulum [Unknown]
  - Computerised tomogram abdomen abnormal [Unknown]
  - Hysterectomy [Unknown]
  - Pelvic fracture [Unknown]
